FAERS Safety Report 20597730 (Version 2)
Quarter: 2022Q1

REPORT INFORMATION
  Report Type: Spontaneous
  Country: US (occurrence: None)
  Receive Date: 20220315
  Receipt Date: 20220315
  Transmission Date: 20220424
  Serious: No
  Sender: FDA-Public Use
  Company Number: US-ROCHE-2747191

PATIENT
  Age: 24 Year
  Sex: Female
  Weight: 68.100 kg

DRUGS (7)
  1. XOLAIR [Suspect]
     Active Substance: OMALIZUMAB
     Indication: Chronic spontaneous urticaria
     Route: 058
     Dates: start: 20201222, end: 20201222
  2. MONTELUKAST [Concomitant]
     Active Substance: MONTELUKAST SODIUM
     Indication: Chronic spontaneous urticaria
     Route: 048
     Dates: start: 20201111
  3. ALLEGRA [Concomitant]
     Active Substance: FEXOFENADINE HYDROCHLORIDE
     Indication: Urticaria
     Route: 048
     Dates: start: 20201111
  4. PEPCID [Concomitant]
     Active Substance: FAMOTIDINE
     Indication: Urticaria
     Route: 048
     Dates: start: 20201111
  5. DOXEPIN [Concomitant]
     Active Substance: DOXEPIN
  6. SINGULAIR [Concomitant]
     Active Substance: MONTELUKAST SODIUM
  7. BENADRYL [Concomitant]
     Active Substance: DIPHENHYDRAMINE HYDROCHLORIDE

REACTIONS (4)
  - Throat irritation [Recovered/Resolved]
  - Urticaria [Recovered/Resolved]
  - Abdominal pain [Recovered/Resolved]
  - Dizziness [Recovered/Resolved]

NARRATIVE: CASE EVENT DATE: 20201222
